FAERS Safety Report 7982806-5 (Version None)
Quarter: 2011Q4

REPORT INFORMATION
  Report Type: 
  Country: None (occurrence: None)
  Receive Date: 20111215
  Receipt Date: 20111206
  Transmission Date: 20120403
  Serious: Yes (Hospitalization, Other)
  Sender: FDA-Public Use
  Company Number: US-BAYER-2011-011716

PATIENT
  Age: 22 Year
  Sex: Female
  Weight: 56.689 kg

DRUGS (6)
  1. YASMIN [Suspect]
     Indication: CONTRACEPTION
     Dosage: UNK
     Route: 048
     Dates: start: 20050923, end: 20080301
  2. AMOXICILLIN [Concomitant]
     Dosage: DAILY DOSE 875 MG
     Route: 048
  3. DIFLUCAN [Concomitant]
  4. LEVAQUIN [Concomitant]
  5. PROMETHAZINE [Concomitant]
  6. ACETAMINOPHEN [Concomitant]

REACTIONS (5)
  - PAIN [None]
  - ANXIETY [None]
  - DEEP VEIN THROMBOSIS [None]
  - INJURY [None]
  - EMOTIONAL DISTRESS [None]
